FAERS Safety Report 5900563-0 (Version None)
Quarter: 2008Q3

REPORT INFORMATION
  Report Type: 
  Country: None (occurrence: None)
  Receive Date: 20080926
  Receipt Date: 20080908
  Transmission Date: 20090109
  Serious: No
  Sender: FDA-Public Use
  Company Number: US-B.I. PHARMACEUTICALS,INC./RIDGEFIELD-2008-BP-14413BP

PATIENT
  Sex: Female
  Weight: 104 kg

DRUGS (1)
  1. MIRAPEX [Suspect]
     Indication: RESTLESS LEGS SYNDROME
     Dates: start: 19980101, end: 20070101

REACTIONS (7)
  - ANXIETY [None]
  - COMPULSIVE SHOPPING [None]
  - DEPRESSION [None]
  - DIABETES MELLITUS [None]
  - PATHOLOGICAL GAMBLING [None]
  - STRESS [None]
  - WEIGHT INCREASED [None]
